FAERS Safety Report 8954732 (Version 2)
Quarter: 2012Q4

REPORT INFORMATION
  Report Type: 
  Country: US (occurrence: US)
  Receive Date: 20121207
  Receipt Date: 20121217
  Transmission Date: 20130627
  Serious: Yes (Hospitalization, Other)
  Sender: FDA-Public Use
  Company Number: US-TARO-2012P1066206

PATIENT
  Age: 42 Year
  Sex: Female

DRUGS (5)
  1. UNSPECIFIED INGREDIENT [Suspect]
     Route: 061
     Dates: start: 20121120, end: 20121121
  2. ALPRAZOLAM [Concomitant]
     Route: 048
     Dates: start: 201204
  3. BUPROPION HCL XL [Concomitant]
     Route: 048
     Dates: start: 2002
  4. MIRENA IUD [Concomitant]
     Dates: start: 201208, end: 20121120
  5. NITROFURANTOIN [Concomitant]
     Dates: start: 2002

REACTIONS (3)
  - Hysterectomy [Recovered/Resolved]
  - Cervical dysplasia [Not Recovered/Not Resolved]
  - Uterine cancer [Not Recovered/Not Resolved]
